FAERS Safety Report 7960015-3 (Version None)
Quarter: 2011Q4

REPORT INFORMATION
  Report Type: 
  Country: None (occurrence: None)
  Receive Date: 20111206
  Receipt Date: 20111121
  Transmission Date: 20120403
  Serious: Yes (Other)
  Sender: FDA-Public Use
  Company Number: US-WATSON-2011-20962

PATIENT
  Age: 76 Year
  Sex: Female

DRUGS (1)
  1. MICROZIDE [Suspect]
     Indication: HYPERTENSION

REACTIONS (1)
  - DRUG ERUPTION [None]
